FAERS Safety Report 8556819-9 (Version None)
Quarter: 2012Q3

REPORT INFORMATION
  Report Type: 
  Country: None (occurrence: None)
  Receive Date: 20120801
  Receipt Date: 20120724
  Transmission Date: 20120928
  Serious: Yes (Death, Other)
  Sender: FDA-Public Use
  Company Number: JP-BAYER-2011-018515

PATIENT
  Age: 80 Year
  Sex: Male
  Weight: 59 kg

DRUGS (9)
  1. SORAFENIB [Suspect]
     Indication: HEPATIC NEOPLASM MALIGNANT
     Dosage: 600MG/DAY
     Route: 048
     Dates: start: 20110124, end: 20110224
  2. SORAFENIB [Suspect]
     Dosage: 400 MG, QOD
     Route: 048
     Dates: start: 20110728, end: 20110929
  3. LIVACT [Concomitant]
     Dosage: DAILY DOSE 12.45 MG
     Route: 048
     Dates: start: 20100816
  4. KERATINAMIN [Concomitant]
     Indication: PROPHYLAXIS
     Dosage: UNK
     Route: 061
     Dates: start: 20110124
  5. ALINAMIN F [FURSULTIAMINE] [Concomitant]
     Dosage: DAILY DOSE 75 MG
     Route: 048
     Dates: start: 20100814
  6. SORAFENIB [Suspect]
     Dosage: 600MG/DAY
     Route: 048
     Dates: start: 20110321, end: 20110512
  7. URSO 250 [Concomitant]
     Dosage: DAILY DOSE 600 MG
     Route: 048
     Dates: start: 20100814
  8. SORAFENIB [Suspect]
     Dosage: 400MG/DAY
     Route: 048
     Dates: start: 20110513, end: 20110720
  9. MUCOSOLVAN [Concomitant]
     Indication: SPUTUM RETENTION
     Dosage: DAILY DOSE 45 MG
     Route: 048
     Dates: start: 20100814

REACTIONS (4)
  - HEPATIC FUNCTION ABNORMAL [None]
  - INSOMNIA [None]
  - HEPATIC NEOPLASM MALIGNANT [None]
  - DIARRHOEA [None]
